FAERS Safety Report 4267244-3 (Version None)
Quarter: 2004Q1

REPORT INFORMATION
  Report Type: 
  Country: None (occurrence: None)
  Receive Date: 20040107
  Receipt Date: 20031230
  Transmission Date: 20041129
  Serious: Yes (Other)
  Sender: FDA-Public Use
  Company Number: 200314143BCC

PATIENT
  Sex: Female

DRUGS (1)
  1. CAMPHO-PHENIQUE [Suspect]
     Dosage: ORAL
     Route: 048

REACTIONS (4)
  - ANOREXIA [None]
  - APHAGIA [None]
  - BURNING SENSATION [None]
  - INSOMNIA [None]
